FAERS Safety Report 6104522-7 (Version None)
Quarter: 2009Q1

REPORT INFORMATION
  Report Type: 
  Country: None (occurrence: None)
  Receive Date: 20090227
  Receipt Date: 20080424
  Transmission Date: 20090719
  Serious: Yes (Life-Threatening, Hospitalization, Other)
  Sender: FDA-Public Use
  Company Number: RB-0955-2008

PATIENT
  Age: 0 Day
  Sex: Female

DRUGS (1)
  1. SUBOXONE [Suspect]
     Indication: DRUG EXPOSURE DURING PREGNANCY
     Dosage: 24 MG TRANSPLACENTAL
     Dates: end: 20080423

REACTIONS (1)
  - DRUG WITHDRAWAL SYNDROME [None]
